FAERS Safety Report 20712553 (Version 1)
Quarter: 2022Q2

REPORT INFORMATION
  Report Type: Spontaneous
  Country: ES (occurrence: ES)
  Receive Date: 20220415
  Receipt Date: 20220415
  Transmission Date: 20220721
  Serious: Yes (Other)
  Sender: FDA-Public Use
  Company Number: ES-SNT-000266

PATIENT
  Age: 50 Year
  Sex: Female

DRUGS (14)
  1. BUPROPION [Suspect]
     Active Substance: BUPROPION
     Indication: Depression
     Dosage: 150 MG (1-0-0)
     Route: 065
  2. QUETIAPINE [Suspect]
     Active Substance: QUETIAPINE
     Indication: Schizophrenia
     Dosage: 300 MG (0-0-1)
     Route: 065
  3. CLOTHIAPINE [Suspect]
     Active Substance: CLOTHIAPINE
     Indication: Schizophrenia
     Dosage: 40 MG (0-0-1)
     Route: 065
  4. TRAZODONE [Suspect]
     Active Substance: TRAZODONE HYDROCHLORIDE
     Indication: Depression
     Dosage: 100 MG (0-0-1)
     Route: 065
  5. REBOXETINE [Suspect]
     Active Substance: REBOXETINE
     Indication: Depression
     Dosage: 4 MG (1-1-0)
     Route: 065
  6. ALPRAZOLAM [Suspect]
     Active Substance: ALPRAZOLAM
     Indication: Product used for unknown indication
     Dosage: 1 MG (1-1-1)
     Route: 065
  7. LORMETAZEPAM [Suspect]
     Active Substance: LORMETAZEPAM
     Indication: Product used for unknown indication
     Dosage: 2 MG (0-0-1)
     Route: 065
  8. BUDESONIDE [Concomitant]
     Active Substance: BUDESONIDE
     Indication: Emphysema
     Dosage: 160 MG
     Route: 055
  9. FORMOTEROL EASYHALER [Concomitant]
     Indication: Emphysema
     Dosage: 160 MG
     Route: 055
  10. TIOTROPIUM BROMIDE [Concomitant]
     Active Substance: TIOTROPIUM BROMIDE
     Indication: Emphysema
     Dosage: 2.5MG (0-0-1)
     Route: 065
  11. PREGABALIN [Concomitant]
     Active Substance: PREGABALIN
     Indication: Hernia
     Dosage: 150 MG (1-1-1)
     Route: 065
  12. FENTANYL [Concomitant]
     Active Substance: FENTANYL
     Indication: Hernia
     Dosage: 25 MCG/H
     Route: 062
  13. ACETAMINOPHEN [Concomitant]
     Active Substance: ACETAMINOPHEN
     Indication: Hernia
     Dosage: 1 G (1-1-1)
     Route: 065
  14. OMEPRAZOLE [Concomitant]
     Active Substance: OMEPRAZOLE
     Indication: Hernia
     Dosage: 20 MG (1-0-0)
     Route: 065

REACTIONS (3)
  - Oral candidiasis [Recovered/Resolved]
  - Gingivitis [Unknown]
  - Dry mouth [Unknown]
